FAERS Safety Report 4736489-8 (Version None)
Quarter: 2005Q3

REPORT INFORMATION
  Report Type: 
  Country: None (occurrence: None)
  Receive Date: 20050804
  Receipt Date: 20050804
  Transmission Date: 20060218
  Serious: Yes (Hospitalization)
  Sender: FDA-Public Use
  Company Number: None

PATIENT
  Sex: Male
  Weight: 269.2 kg

DRUGS (2)
  1. ARANESP [Suspect]
     Indication: ANAEMIA
     Dosage: 200 MCG SQ WEEKLY
     Route: 058
     Dates: start: 20050617, end: 20050715
  2. GEMZAR [Suspect]
     Indication: PANCREATIC CARCINOMA METASTATIC
     Dosage: 2000 MG IV
     Route: 042
     Dates: start: 20050628, end: 20050715

REACTIONS (11)
  - ABDOMINAL PAIN [None]
  - CHRONIC OBSTRUCTIVE PULMONARY DISEASE [None]
  - DIABETES MELLITUS [None]
  - FAILURE TO THRIVE [None]
  - HYPERLIPIDAEMIA [None]
  - HYPOTENSION [None]
  - MALNUTRITION [None]
  - OEDEMA PERIPHERAL [None]
  - PANCREATIC CARCINOMA [None]
  - RENAL FAILURE [None]
  - TACHYCARDIA [None]
